FAERS Safety Report 7994975-1 (Version None)
Quarter: 2011Q4

REPORT INFORMATION
  Report Type: 
  Country: None (occurrence: None)
  Receive Date: 20111220
  Receipt Date: 20111212
  Transmission Date: 20120403
  Serious: Yes (Hospitalization)
  Sender: FDA-Public Use
  Company Number: FR-BRISTOL-MYERS SQUIBB COMPANY-16196537

PATIENT
  Age: 36 Year
  Sex: Female
  Weight: 65 kg

DRUGS (3)
  1. ABILIFY [Suspect]
     Indication: PSYCHOMOTOR RETARDATION
     Route: 048
     Dates: start: 20101009
  2. MIRTAZAPINE [Concomitant]
     Indication: DEPRESSION
     Dosage: TABS
     Route: 048
     Dates: start: 20100701
  3. GESTODENE AND ETHINYL ESTRADIOL [Concomitant]
     Indication: CONTRACEPTION
     Route: 048

REACTIONS (1)
  - HYPERTHYROIDISM [None]
